FAERS Safety Report 11202707 (Version 1)
Quarter: 2015Q2

REPORT INFORMATION
  Report Type: Spontaneous
  Country: US (occurrence: None)
  Receive Date: 20150617
  Receipt Date: 20150617
  Transmission Date: 20150821
  Serious: Yes (Hospitalization)
  Sender: FDA-Public Use
  Company Number: None

PATIENT
  Age: 63 Year
  Sex: Female
  Weight: 81.65 kg

DRUGS (15)
  1. LISINOPRIL AND HYDROCHLOROTHIAZIDE [Concomitant]
     Active Substance: HYDROCHLOROTHIAZIDE\LISINOPRIL
  2. METHOTREXATE [Concomitant]
     Active Substance: METHOTREXATE
  3. CELEBREX [Concomitant]
     Active Substance: CELECOXIB
  4. ASPIRIN. [Concomitant]
     Active Substance: ASPIRIN
  5. OMEGA XL [Concomitant]
     Active Substance: DIETARY SUPPLEMENT
  6. PREDNISONE. [Concomitant]
     Active Substance: PREDNISONE
  7. FOLIC ACID. [Concomitant]
     Active Substance: FOLIC ACID
  8. BIO IDENTICAL HORMONES [Concomitant]
  9. NUTRIEX [Concomitant]
  10. SYNTHROID [Concomitant]
     Active Substance: LEVOTHYROXINE SODIUM
  11. VIMPAT [Concomitant]
     Active Substance: LACOSAMIDE
  12. TORADOL [Suspect]
     Active Substance: KETOROLAC TROMETHAMINE
  13. MECCLIZINE [Concomitant]
  14. OMEPRAZOLE. [Concomitant]
     Active Substance: OMEPRAZOLE
  15. CRESTOR [Concomitant]
     Active Substance: ROSUVASTATIN CALCIUM

REACTIONS (2)
  - Urinary retention [None]
  - Bladder disorder [None]

NARRATIVE: CASE EVENT DATE: 20150208
